FAERS Safety Report 6561226-4 (Version None)
Quarter: 2010Q1

REPORT INFORMATION
  Report Type: 
  Country: None (occurrence: None)
  Receive Date: 20100130
  Receipt Date: 20091005
  Transmission Date: 20100710
  Serious: No
  Sender: FDA-Public Use
  Company Number: US-ABBOTT-09P-163-0601872-00

PATIENT
  Sex: Male

DRUGS (2)
  1. HUMIRA [Suspect]
     Indication: CROHN'S DISEASE
     Dates: start: 20090704, end: 20090801
  2. HUMIRA [Suspect]
     Route: 058
     Dates: start: 20090901, end: 20091001

REACTIONS (2)
  - CROHN'S DISEASE [None]
  - HERPES ZOSTER [None]
